FAERS Safety Report 8146843-2 (Version None)
Quarter: 2012Q1

REPORT INFORMATION
  Report Type: 
  Country: None (occurrence: None)
  Receive Date: 20120217
  Receipt Date: 20120215
  Transmission Date: 20120608
  Serious: Yes (Life-Threatening, Hospitalization, Disabling, Other)
  Sender: FDA-Public Use
  Company Number: US-ABBOTT-12P-163-0904749-00

PATIENT
  Sex: Female

DRUGS (3)
  1. HUMIRA [Suspect]
     Indication: PSORIASIS
     Dosage: INITIAL DOSE: 80 MG
     Route: 058
     Dates: start: 20080730, end: 20080730
  2. HUMIRA [Suspect]
     Route: 058
     Dates: end: 20110309
  3. HUMIRA [Suspect]
     Route: 058
     Dates: start: 20110309, end: 20110615

REACTIONS (1)
  - BREAST CANCER [None]
